FAERS Safety Report 23642849 (Version 1)
Quarter: 2024Q1

REPORT INFORMATION
  Report Type: Spontaneous
  Country: GB (occurrence: GB)
  Receive Date: 20240318
  Receipt Date: 20240318
  Transmission Date: 20240409
  Serious: Yes (Other)
  Sender: FDA-Public Use
  Company Number: None

PATIENT
  Age: 66 Year
  Sex: Male
  Weight: 67 kg

DRUGS (5)
  1. TAMSULOSIN [Suspect]
     Active Substance: TAMSULOSIN
     Indication: Lower urinary tract symptoms
     Route: 065
  2. UNIROID-HC [Concomitant]
     Dates: start: 20230628
  3. LERCANIDIPINE [Concomitant]
     Active Substance: LERCANIDIPINE
     Dates: start: 20230629
  4. FLUOROURACIL [Concomitant]
     Active Substance: FLUOROURACIL
     Dosage: APPLY
     Dates: start: 20230628
  5. LACTULOSE [Concomitant]
     Active Substance: LACTULOSE
     Dosage: 3.1-3.7G/5 ML,
     Dates: start: 20230628

REACTIONS (3)
  - Rash [Recovered/Resolved]
  - Skin exfoliation [Recovered/Resolved]
  - Erythema [Recovered/Resolved]

NARRATIVE: CASE EVENT DATE: 20230711
